FAERS Safety Report 5784852-9 (Version None)
Quarter: 2008Q2

REPORT INFORMATION
  Report Type: 
  Country: None (occurrence: None)
  Receive Date: 20080605
  Receipt Date: 20080505
  Transmission Date: 20081010
  Serious: No
  Sender: FDA-Public Use
  Company Number: A0723028A

PATIENT
  Age: 42 Year
  Sex: Female
  Weight: 122 kg

DRUGS (1)
  1. ALLI [Suspect]
     Dates: start: 20080324

REACTIONS (6)
  - ABDOMINAL DISCOMFORT [None]
  - CONSTIPATION [None]
  - DEFAECATION URGENCY [None]
  - FAECAL VOLUME DECREASED [None]
  - PHARMACEUTICAL PRODUCT COMPLAINT [None]
  - STEATORRHOEA [None]
